FAERS Safety Report 4749591-1 (Version None)
Quarter: 2005Q3

REPORT INFORMATION
  Report Type: 
  Country: None (occurrence: None)
  Receive Date: 20050822
  Receipt Date: 20050816
  Transmission Date: 20060218
  Serious: Yes (Hospitalization)
  Sender: FDA-Public Use
  Company Number: IT-GLAXOSMITHKLINE-B0391232A

PATIENT
  Age: 79 Year
  Sex: Female

DRUGS (2)
  1. CEFTAZIDIME SODIUM [Suspect]
     Indication: HYPERPYREXIA
     Dosage: 2G PER DAY
     Route: 030
     Dates: start: 20050729, end: 20050808
  2. LEVOFLOXACIN [Suspect]
     Indication: HYPERPYREXIA
     Dosage: 500MG PER DAY
     Route: 042
     Dates: start: 20050729, end: 20050808

REACTIONS (2)
  - STOMATITIS HAEMORRHAGIC [None]
  - THROMBOCYTOPENIA [None]
